FAERS Safety Report 7618030-5 (Version None)
Quarter: 2011Q3

REPORT INFORMATION
  Report Type: 
  Country: None (occurrence: None)
  Receive Date: 20110718
  Receipt Date: 20110711
  Transmission Date: 20111222
  Serious: Yes (Other)
  Sender: FDA-Public Use
  Company Number: BR-GLAXOSMITHKLINE-A0936419A

PATIENT
  Sex: Female

DRUGS (7)
  1. LOSARTAN [Concomitant]
     Indication: HYPERTENSION
     Dates: start: 20110709
  2. NICOTINE [Suspect]
     Indication: SMOKING CESSATION THERAPY
     Dosage: 2PAT PER DAY
     Route: 062
     Dates: start: 20110709, end: 20110710
  3. CLORANA [Concomitant]
     Indication: HYPERTENSION
     Dates: start: 20110709
  4. LORAZEPAM [Concomitant]
     Indication: ANXIETY
     Dates: start: 19910715
  5. SERTRALINA [Concomitant]
     Indication: DEPRESSION
     Dates: start: 20100712
  6. DIAZEPAM [Concomitant]
     Indication: ANXIETY
     Dates: start: 20010716
  7. PHENERGAN [Concomitant]
     Indication: HYPERSENSITIVITY
     Dates: start: 20090711

REACTIONS (5)
  - DYSGEUSIA [None]
  - INSOMNIA [None]
  - HALLUCINATION [None]
  - DRUG ADMINISTRATION ERROR [None]
  - HEADACHE [None]
